FAERS Safety Report 17866188 (Version 3)
Quarter: 2020Q3

REPORT INFORMATION
  Report Type: Not Available
  Country: US (occurrence: US)
  Receive Date: 20200605
  Receipt Date: 20200715
  Transmission Date: 20201103
  Serious: Yes (Death)
  Sender: FDA-Public Use
  Company Number: US-NEUROCRINE BIOSCIENCES INC.-2020NBI01661

PATIENT
  Age: 86 Year
  Sex: Female

DRUGS (24)
  1. INGREZZA [Suspect]
     Active Substance: VALBENAZINE
     Indication: TARDIVE DYSKINESIA
     Route: 048
     Dates: start: 20190918, end: 20200517
  2. ASA EC [Concomitant]
     Active Substance: ASPIRIN
     Route: 048
     Dates: start: 20200221
  3. METAMUCIL [Concomitant]
     Active Substance: PLANTAGO SEED
     Dosage: TAKE 1 PACKET BY MOUTH
     Route: 048
     Dates: start: 20180327
  4. SENOKOT [Concomitant]
     Active Substance: SENNOSIDES
     Indication: CONSTIPATION
     Dosage: 1 TAB TWICE DAILY AS NEEDED
     Route: 048
     Dates: start: 20180326
  5. XALATAN [Concomitant]
     Active Substance: LATANOPROST
     Dosage: 1 DROP IN BOTH THE EYES AT BEDTIME
     Route: 047
     Dates: start: 20170725
  6. IBUPROFEN. [Concomitant]
     Active Substance: IBUPROFEN
     Indication: ARTHRALGIA
     Dosage: MOTRIN;ADVIL 1 TABLET EVERY 6 HOURS AS NEEDED
     Route: 048
     Dates: start: 20170221
  7. HEXAVITAMIN [Concomitant]
     Route: 048
     Dates: start: 20200221
  8. ATIVAN [Concomitant]
     Active Substance: LORAZEPAM
     Indication: AGITATION
  9. VITAMIN D3 [Concomitant]
     Active Substance: CHOLECALCIFEROL
     Route: 048
  10. ASPERCREME NOS [Concomitant]
     Active Substance: MENTHOL\TROLAMINE SALICYLATE
     Indication: MUSCULOSKELETAL DISCOMFORT
     Dosage: 10% 85 GM CREAM, APPLY TOPICALLY
     Route: 061
     Dates: start: 20170808
  11. ALPHAGAN P [Concomitant]
     Active Substance: BRIMONIDINE TARTRATE
     Dosage: 1 DROP IN BOTH THE EYES
     Route: 047
     Dates: start: 20170803
  12. COSOPT [Concomitant]
     Active Substance: DORZOLAMIDE HYDROCHLORIDE\TIMOLOL MALEATE
     Dosage: 2?0.5% 01 DROP IN BOTH THE EYES
     Route: 047
     Dates: start: 20170724
  13. BENADRYL;HALDOL;ATIVAN [Concomitant]
     Dosage: BENADRYL 25G;HALDOL 1G;ATIVAN 1G ? APPLY 1 APPLICATION TO SKIN EVERY 4 HOURS
     Route: 062
     Dates: start: 20200221
  14. LISINOPRIL. [Concomitant]
     Active Substance: LISINOPRIL
     Dosage: PRINIVIL;ZESTRIL
     Route: 048
     Dates: start: 20190920
  15. ACETAMINOPHEN. [Concomitant]
     Active Substance: ACETAMINOPHEN
     Indication: PAIN
     Dosage: EVERY 6 HOURS AS NEEDED FOR MILD OR MODERATE PAIN
     Route: 048
  16. TUMS [Concomitant]
     Active Substance: CALCIUM CARBONATE
     Indication: DYSPEPSIA
     Dosage: 1 TABLET 3 TIMES DAILY AS NEEDED
     Route: 048
  17. MILK OF MAGNESIA [Concomitant]
     Active Substance: MAGNESIUM HYDROXIDE
     Indication: CONSTIPATION
     Dosage: 400MG/5ML, DAILY AS NEEDED
     Route: 048
  18. ATIVAN [Concomitant]
     Active Substance: LORAZEPAM
     Indication: INSOMNIA
     Dosage: TWICE DAILY AS NEEDED
     Route: 048
     Dates: start: 20190426
  19. MELATONIN [Concomitant]
     Active Substance: MELATONIN
     Indication: INSOMNIA
     Dosage: AT BEDTIME
     Route: 048
     Dates: start: 20180326
  20. MAALOX ANTACID [Concomitant]
     Active Substance: ALUMINUM HYDROXIDE\DIMETHICONE\MAGNESIUM HYDROXIDE
     Indication: DYSPEPSIA
     Dosage: 200?200?20 MG, TAKE 10 ML 3 TIMES DAILY AS NEEDED
     Route: 048
  21. DULCOLAX NOS [Concomitant]
     Active Substance: BISACODYL OR DOCUSATE SODIUM
     Indication: CONSTIPATION
     Dosage: DAILY AS NEEDED
     Route: 054
  22. MELATONIN [Concomitant]
     Active Substance: MELATONIN
     Dosage: AT BEDTIME
     Route: 048
     Dates: start: 20200221
  23. HYDROCHLOROTHIAZIDE. [Concomitant]
     Active Substance: HYDROCHLOROTHIAZIDE
     Dosage: TAKE 0.5 TABLET (12.5MG)
     Route: 048
     Dates: start: 20191127
  24. DEPAKOTE SPRINKLES [Concomitant]
     Active Substance: DIVALPROEX SODIUM
     Dosage: ^CSDR^, AT BEDTIME
     Route: 048

REACTIONS (1)
  - General physical health deterioration [Fatal]

NARRATIVE: CASE EVENT DATE: 202002
